FAERS Safety Report 8189891-9 (Version None)
Quarter: 2012Q1

REPORT INFORMATION
  Report Type: 
  Country: None (occurrence: None)
  Receive Date: 20120307
  Receipt Date: 20120228
  Transmission Date: 20120608
  Serious: Yes (Other)
  Sender: FDA-Public Use
  Company Number: US-JNJFOC-20120214309

PATIENT
  Age: 52 Year

DRUGS (6)
  1. PACLITAXEL [Suspect]
     Indication: BREAST CANCER
     Route: 042
     Dates: start: 20080703
  2. BEVACIZUMAB [Suspect]
     Indication: BREAST CANCER
     Route: 042
     Dates: start: 20080703
  3. NEULASTA [Suspect]
     Indication: BREAST CANCER
     Route: 058
     Dates: start: 20080703
  4. CYCLOPHOSPHAMIDE [Suspect]
     Indication: BREAST CANCER
     Route: 042
     Dates: start: 20080703
  5. FILGRASTIM [Suspect]
     Indication: BREAST CANCER
     Route: 058
     Dates: start: 20080703
  6. DOXORUBICIN HCL [Suspect]
     Indication: BREAST CANCER
     Route: 042
     Dates: start: 20080703

REACTIONS (1)
  - WOUND DEHISCENCE [None]
